FAERS Safety Report 6034657-9 (Version None)
Quarter: 2009Q1

REPORT INFORMATION
  Report Type: 
  Country: None (occurrence: None)
  Receive Date: 20090112
  Receipt Date: 20090105
  Transmission Date: 20090719
  Serious: Yes (Life-Threatening, Hospitalization)
  Sender: FDA-Public Use
  Company Number: US-PFIZER INC-2008079717

PATIENT
  Sex: Female

DRUGS (11)
  1. BLINDED *PLACEBO [Suspect]
     Indication: OSTEOARTHRITIS
     Route: 048
     Dates: start: 20080817, end: 20080915
  2. BLINDED CELECOXIB [Suspect]
     Indication: OSTEOARTHRITIS
     Route: 048
     Dates: start: 20080817, end: 20080915
  3. IBUPROFEN TABLETS [Suspect]
     Indication: OSTEOARTHRITIS
     Route: 048
     Dates: start: 20080817, end: 20080915
  4. NAPROXEN [Suspect]
     Indication: OSTEOARTHRITIS
     Route: 048
     Dates: start: 20080817, end: 20080915
  5. BLINDED *PLACEBO [Suspect]
     Indication: RHEUMATOID ARTHRITIS
  6. BLINDED CELECOXIB [Suspect]
     Indication: RHEUMATOID ARTHRITIS
  7. IBUPROFEN TABLETS [Suspect]
     Indication: RHEUMATOID ARTHRITIS
  8. NAPROXEN [Suspect]
     Indication: RHEUMATOID ARTHRITIS
  9. METHOTREXATE [Concomitant]
     Route: 048
     Dates: start: 19800101
  10. PRINZIDE [Concomitant]
     Route: 048
     Dates: start: 20030101
  11. FOLIC ACID [Concomitant]
     Route: 048
     Dates: start: 19800101

REACTIONS (1)
  - MALAISE [None]
